FAERS Safety Report 5500725-0 (Version None)
Quarter: 2007Q4

REPORT INFORMATION
  Report Type: 
  Country: None (occurrence: None)
  Receive Date: 20071029
  Receipt Date: 20071022
  Transmission Date: 20080405
  Serious: Yes (Death)
  Sender: FDA-Public Use
  Company Number: US-BAXTER-2007BH008519

PATIENT

DRUGS (1)
  1. PENICILLIN G POTASSIUM  INJ IN PLASTIC CO [Suspect]
     Indication: DRUG EXPOSURE DURING PREGNANCY
     Dosage: DOSE UNIT:UNKNOWN
     Route: 042

REACTIONS (1)
  - NEONATAL ASPHYXIA [None]
